FAERS Safety Report 7326205-8 (Version None)
Quarter: 2011Q1

REPORT INFORMATION
  Report Type: 
  Country: None (occurrence: None)
  Receive Date: 20110302
  Receipt Date: 20110222
  Transmission Date: 20110831
  Serious: Yes (Hospitalization)
  Sender: FDA-Public Use
  Company Number: A0788275A

PATIENT
  Age: 47 Year
  Sex: Female
  Weight: 126.8 kg

DRUGS (6)
  1. AVANDIA [Suspect]
     Dosage: 8MG PER DAY
     Route: 048
     Dates: start: 20020724, end: 20050501
  2. ENALAPRIL [Concomitant]
  3. ZOCOR [Concomitant]
  4. METFORMIN [Concomitant]
  5. LASIX [Concomitant]
  6. NITROFURANTOIN [Concomitant]

REACTIONS (3)
  - ANGINA UNSTABLE [None]
  - CORONARY ARTERY DISEASE [None]
  - MYOCARDIAL INFARCTION [None]
